FAERS Safety Report 15846310 (Version 5)
Quarter: 2019Q3

REPORT INFORMATION
  Report Type: Report from Study
  Country: CA (occurrence: CA)
  Receive Date: 20190120
  Receipt Date: 20190923
  Transmission Date: 20191004
  Serious: Yes (Hospitalization, Other)
  Sender: FDA-Public Use
  Company Number: CA-BRISTOL-MYERS SQUIBB COMPANY-BMS-2017-102541

PATIENT
  Age: 41 Year
  Sex: Female

DRUGS (1)
  1. ABATACEPT [Suspect]
     Active Substance: ABATACEPT
     Indication: RHEUMATOID ARTHRITIS
     Dosage: 750 MG, 3 VIALS, Q4WK
     Route: 042
     Dates: start: 20170817

REACTIONS (11)
  - Infection [Unknown]
  - Postoperative wound infection [Recovered/Resolved]
  - Back pain [Recovered/Resolved]
  - Benign breast neoplasm [Unknown]
  - Thrombosis [Unknown]
  - Headache [Recovered/Resolved]
  - Arthropathy [Unknown]
  - Nasopharyngitis [Recovered/Resolved]
  - Diarrhoea [Not Recovered/Not Resolved]
  - Foot fracture [Unknown]
  - Cellulitis [Recovered/Resolved]

NARRATIVE: CASE EVENT DATE: 20171015
